FAERS Safety Report 21347790 (Version 2)
Quarter: 2023Q1

REPORT INFORMATION
  Report Type: Report from Study
  Country: US (occurrence: None)
  Receive Date: 20220919
  Receipt Date: 20230321
  Transmission Date: 20230417
  Serious: Yes (Death, Hospitalization)
  Sender: FDA-Public Use
  Company Number: US-ROCHE-3171399

PATIENT
  Age: 59 Year
  Sex: Male
  Weight: 97.9 kg

DRUGS (13)
  1. VENETOCLAX [Suspect]
     Active Substance: VENETOCLAX
     Indication: Diffuse large B-cell lymphoma
     Dosage: D2-D14
     Route: 048
     Dates: start: 20220727, end: 20220808
  2. OBINUTUZUMAB [Suspect]
     Active Substance: OBINUTUZUMAB
     Indication: Diffuse large B-cell lymphoma
     Dosage: 25 MG/ML
     Route: 042
     Dates: start: 20220726, end: 20220727
  3. POLATUZUMAB VEDOTIN [Suspect]
     Active Substance: POLATUZUMAB VEDOTIN
     Indication: Diffuse large B-cell lymphoma
     Dosage: D2
     Route: 042
     Dates: start: 20220727, end: 20220727
  4. RITUXIMAB [Suspect]
     Active Substance: RITUXIMAB
     Indication: Diffuse large B-cell lymphoma
     Dosage: D1
     Route: 042
     Dates: start: 20220819
  5. IBRUTINIB [Suspect]
     Active Substance: IBRUTINIB
     Indication: Diffuse large B-cell lymphoma
     Dosage: D1-D14
     Route: 048
     Dates: start: 20220726, end: 20220808
  6. PREDNISONE [Suspect]
     Active Substance: PREDNISONE
     Indication: Diffuse large B-cell lymphoma
     Dosage: D1-D7
     Route: 048
     Dates: start: 20220726, end: 20220801
  7. PREDNISONE [Suspect]
     Active Substance: PREDNISONE
     Dosage: D1-D4
     Route: 065
     Dates: start: 20220819, end: 20220823
  8. LENALIDOMIDE [Suspect]
     Active Substance: LENALIDOMIDE
     Indication: Diffuse large B-cell lymphoma
     Dosage: D1-D14
     Route: 048
     Dates: start: 20220726, end: 20220808
  9. COPANLISIB [Suspect]
     Active Substance: COPANLISIB
     Indication: Diffuse large B-cell lymphoma
     Dosage: (D) 1 AND D5,
     Route: 042
     Dates: start: 20220819, end: 20220823
  10. ETOPOSIDE [Suspect]
     Active Substance: ETOPOSIDE
     Indication: Diffuse large B-cell lymphoma
     Dosage: D1-D4
     Route: 042
     Dates: start: 20220819, end: 20220822
  11. CYCLOPHOSPHAMIDE [Suspect]
     Active Substance: CYCLOPHOSPHAMIDE
     Indication: Diffuse large B-cell lymphoma
     Dosage: D5
     Route: 042
     Dates: start: 20220819, end: 20220823
  12. VINCRISTINE [Suspect]
     Active Substance: VINCRISTINE
     Indication: Diffuse large B-cell lymphoma
     Dosage: D1-D4 CIV
     Route: 042
     Dates: start: 20220819, end: 20220823
  13. DOXORUBICIN [Suspect]
     Active Substance: DOXORUBICIN
     Indication: Diffuse large B-cell lymphoma
     Dosage: D1-D4
     Route: 065
     Dates: start: 20220819, end: 20220822

REACTIONS (2)
  - Muscular weakness [Fatal]
  - Platelet count decreased [Fatal]

NARRATIVE: CASE EVENT DATE: 20220826
